FAERS Safety Report 8443745-9 (Version None)
Quarter: 2012Q2

REPORT INFORMATION
  Report Type: 
  Country: None (occurrence: None)
  Receive Date: 20120618
  Receipt Date: 20120605
  Transmission Date: 20120825
  Serious: Yes (Hospitalization, Other)
  Sender: FDA-Public Use
  Company Number: US-ELI_LILLY_AND_COMPANY-US201206002181

PATIENT
  Age: 22 Year
  Sex: Female

DRUGS (3)
  1. ZYPREXA [Suspect]
     Indication: SCHIZOPHRENIA
     Dosage: UNK
     Route: 048
  2. INVEGA SUSTENNA [Concomitant]
     Dosage: 234 MG, OTHER
     Route: 030
  3. LORAZEPAM [Concomitant]
     Route: 048

REACTIONS (3)
  - NEUROLEPTIC MALIGNANT SYNDROME [None]
  - EATING DISORDER SYMPTOM [None]
  - CATATONIA [None]
